FAERS Safety Report 4875421-3 (Version None)
Quarter: 2006Q1

REPORT INFORMATION
  Report Type: 
  Country: None (occurrence: None)
  Receive Date: 20060104
  Receipt Date: 20051221
  Transmission Date: 20060701
  Serious: Yes (Hospitalization)
  Sender: FDA-Public Use
  Company Number: 220634

PATIENT

DRUGS (2)
  1. MABTHERA (RITUXIMAB) CONC FOR SOLUTION FOR INFUSION [Suspect]
     Indication: NON-HODGKIN'S LYMPHOMA
  2. CHEMOTHERAPY NOS (ANTINEOPLASTIC AGENT NOS) [Suspect]
     Indication: NON-HODGKIN'S LYMPHOMA

REACTIONS (1)
  - PNEUMOCYSTIS JIROVECI PNEUMONIA [None]
